FAERS Safety Report 25899810 (Version 1)
Quarter: 2025Q4

REPORT INFORMATION
  Report Type: Spontaneous
  Country: EU (occurrence: EU)
  Receive Date: 20251009
  Receipt Date: 20251009
  Transmission Date: 20260118
  Serious: Yes (Hospitalization)
  Sender: ACCORD
  Company Number: None

PATIENT
  Age: 30 Year
  Sex: Male
  Weight: 83 kg

DRUGS (8)
  1. CLOZAPINE [Suspect]
     Active Substance: CLOZAPINE
     Indication: Wrong patient
     Dates: start: 20250808, end: 20250808
  2. LOXAPINE SUCCINATE [Suspect]
     Active Substance: LOXAPINE SUCCINATE
     Indication: Wrong patient
     Dates: start: 20250808, end: 20250808
  3. PRAZEPAM [Suspect]
     Active Substance: PRAZEPAM
     Indication: Wrong patient
     Dates: start: 20250808, end: 20250808
  4. PIPAMPERONE [Suspect]
     Active Substance: PIPAMPERONE
     Indication: Behaviour disorder
     Dosage: STRENGTH: 40 MG/ML, IN DROPS, 5 DROPS MORNING AND EVENING
  5. VALPROATE SODIUM [Suspect]
     Active Substance: VALPROATE SODIUM
     Indication: Behaviour disorder
     Dosage: STRENGTH: 500 MG,
  6. TRANXENE [Suspect]
     Active Substance: CLORAZEPATE DIPOTASSIUM
     Indication: Behaviour disorder
     Dosage: STRENGTH: 10 MG
  7. PERICIAZINE [Suspect]
     Active Substance: PERICIAZINE
     Indication: Behaviour disorder
     Dosage: STRENGTH: 10 MG, 1 AT NOON
  8. TRIHEXYPHENIDYL HYDROCHLORIDE [Suspect]
     Active Substance: TRIHEXYPHENIDYL HYDROCHLORIDE
     Indication: Behaviour disorder
     Dosage: STRENGTH: 5 MG, 1 AT NOON

REACTIONS (3)
  - Coma [Recovered/Resolved]
  - Wrong patient [Recovered/Resolved]
  - Drug interaction [Recovered/Resolved]

NARRATIVE: CASE EVENT DATE: 20250808
